APPROVED DRUG PRODUCT: ALCAFTADINE
Active Ingredient: ALCAFTADINE
Strength: 0.25%
Dosage Form/Route: SOLUTION/DROPS;OPHTHALMIC
Application: A210659 | Product #001
Applicant: EUGIA PHARMA SPECIALITIES LTD
Approved: Jun 23, 2023 | RLD: No | RS: No | Type: DISCN